FAERS Safety Report 6223795-3 (Version None)
Quarter: 2009Q2

REPORT INFORMATION
  Report Type: 
  Country: None (occurrence: None)
  Receive Date: 20090611
  Receipt Date: 20090327
  Transmission Date: 20091009
  Serious: No
  Sender: FDA-Public Use
  Company Number: US-ABBOTT-09P-163-0557938-00

PATIENT
  Sex: Male
  Weight: 73.548 kg

DRUGS (3)
  1. HUMIRA [Suspect]
     Indication: CROHN'S DISEASE
     Route: 058
     Dates: start: 20080502, end: 20090206
  2. ALEVE [Concomitant]
     Indication: PAIN
     Route: 048
  3. VITAMIN B-12 [Concomitant]
     Indication: VITAMIN SUPPLEMENTATION
     Route: 058
     Dates: start: 20080801

REACTIONS (8)
  - BACK PAIN [None]
  - BLISTER [None]
  - HEADACHE [None]
  - HERPES ZOSTER [None]
  - HYPOAESTHESIA [None]
  - MELANOCYTIC NAEVUS [None]
  - RASH [None]
  - SKIN BURNING SENSATION [None]
